FAERS Safety Report 26142738 (Version 1)
Quarter: 2025Q4

REPORT INFORMATION
  Report Type: Spontaneous
  Country: US (occurrence: US)
  Receive Date: 20251211
  Receipt Date: 20251211
  Transmission Date: 20260118
  Serious: Yes (Hospitalization, Other)
  Sender: Kenvue
  Company Number: US-KENVUE-20251202152

PATIENT
  Age: 34 Year
  Sex: Male

DRUGS (1)
  1. PHENYLEPHRINE HYDROCHLORIDE [Suspect]
     Active Substance: PHENYLEPHRINE HYDROCHLORIDE
     Indication: Viral infection
     Dosage: SEVERAL WEEKS
     Route: 065

REACTIONS (5)
  - Hypertensive emergency [Recovering/Resolving]
  - Cardiac failure [Unknown]
  - Posterior reversible encephalopathy syndrome [Unknown]
  - Papilloedema [Unknown]
  - Paraesthesia [Unknown]
